FAERS Safety Report 22305955 (Version 3)
Quarter: 2024Q4

REPORT INFORMATION
  Report Type: Report from Study
  Country: US (occurrence: US)
  Receive Date: 20230511
  Receipt Date: 20241005
  Transmission Date: 20250115
  Serious: No
  Sender: NOVARTIS
  Company Number: US-002147023-NVSC2023US103884

PATIENT
  Sex: Male
  Weight: 53.52 kg

DRUGS (2)
  1. COSENTYX [Suspect]
     Active Substance: SECUKINUMAB
     Indication: Psoriasis
     Dosage: 150 MG, UNKNOWN
     Route: 058
     Dates: start: 20230505, end: 202405
  2. TRIAMCINOLONE [Suspect]
     Active Substance: TRIAMCINOLONE
     Indication: Psoriasis
     Dosage: 0.1 %, TOPICAL
     Route: 065

REACTIONS (10)
  - Psoriasis [Unknown]
  - Nail psoriasis [Unknown]
  - Nail pitting [Unknown]
  - Xerosis [Recovering/Resolving]
  - Skin exfoliation [Unknown]
  - Burning sensation [Unknown]
  - Rash [Unknown]
  - Pruritus [Unknown]
  - Haemangioma of skin [Unknown]
  - Drug ineffective [Unknown]
